FAERS Safety Report 4410060-X (Version None)
Quarter: 2004Q3

REPORT INFORMATION
  Report Type: 
  Country: None (occurrence: None)
  Receive Date: 20040728
  Receipt Date: 20040714
  Transmission Date: 20050211
  Serious: Yes (Other)
  Sender: FDA-Public Use
  Company Number: PHBS2004JP09406

PATIENT
  Age: 56 Year
  Sex: Male

DRUGS (1)
  1. METOPIRONE [Suspect]
     Indication: HYPERADRENALISM
     Route: 048

REACTIONS (2)
  - BLOOD CORTICOSTERONE INCREASED [None]
  - HYPOKALAEMIA [None]
